FAERS Safety Report 25139946 (Version 1)
Quarter: 2025Q1

REPORT INFORMATION
  Report Type: Spontaneous
  Country: US (occurrence: US)
  Receive Date: 20250331
  Receipt Date: 20250331
  Transmission Date: 20250409
  Serious: No
  Sender: Kenvue
  Company Number: US-KENVUE-20250300909

PATIENT
  Age: 19 Year
  Sex: Female

DRUGS (7)
  1. ZYRTEC [Suspect]
     Active Substance: CETIRIZINE HYDROCHLORIDE
     Indication: Chronic spontaneous urticaria
     Dosage: 2 DOSAGE FORM, ONCE A DAY
     Route: 065
     Dates: start: 202501
  2. BENADRYL [Suspect]
     Active Substance: DIPHENHYDRAMINE HYDROCHLORIDE
     Indication: Chronic spontaneous urticaria
     Route: 065
     Dates: start: 202501
  3. PEPCID [Suspect]
     Active Substance: FAMOTIDINE
     Indication: Chronic spontaneous urticaria
     Route: 065
     Dates: start: 202501
  4. PULMICORT TURBUHALER [Concomitant]
     Active Substance: BUDESONIDE
     Indication: Asthma
     Route: 065
  5. ALBUTEROL [Concomitant]
     Active Substance: ALBUTEROL
     Indication: Asthma
     Route: 065
  6. ASPIRIN [Concomitant]
     Active Substance: ASPIRIN
     Indication: Headache
     Route: 065
  7. UNSPECIFIED INGREDIENT [Concomitant]
     Active Substance: UNSPECIFIED INGREDIENT
     Indication: Chronic spontaneous urticaria
     Route: 065
     Dates: start: 202501

REACTIONS (5)
  - Off label use [Unknown]
  - Therapeutic response unexpected [Unknown]
  - Prescribed overdose [Unknown]
  - Peripheral swelling [Unknown]
  - Oedema peripheral [Unknown]

NARRATIVE: CASE EVENT DATE: 20250101
